FAERS Safety Report 23684976 (Version 2)
Quarter: 2024Q2

REPORT INFORMATION
  Report Type: Spontaneous
  Country: JP (occurrence: JP)
  Receive Date: 20240328
  Receipt Date: 20240416
  Transmission Date: 20240716
  Serious: Yes (Hospitalization, Disabling, Other)
  Sender: FDA-Public Use
  Company Number: JP-ABBVIE-5619426

PATIENT
  Age: 52 Year
  Sex: Male
  Weight: 42 kg

DRUGS (14)
  1. HUMIRA [Suspect]
     Active Substance: ADALIMUMAB
     Indication: Behcet^s syndrome
     Dosage: FORM STRENGTH 40 MILLIGRAM
     Route: 058
     Dates: start: 20231031, end: 20231229
  2. HUMIRA [Suspect]
     Active Substance: ADALIMUMAB
     Dosage: STRENGTH: 40 MG?LAST ADMIN DATE 2023
     Route: 058
     Dates: start: 20230920
  3. HUMIRA [Suspect]
     Active Substance: ADALIMUMAB
     Dosage: FORM STRENGTH 40 MILLIGRAM
     Route: 058
     Dates: start: 20240109, end: 20240109
  4. HUMIRA [Suspect]
     Active Substance: ADALIMUMAB
     Dosage: STRENGTH: 40 MG?LAST ADMIN DATE 2023
     Route: 058
     Dates: start: 20230829
  5. HUMIRA [Suspect]
     Active Substance: ADALIMUMAB
     Dosage: STRENGTH: 40 MG?LAST ADMIN DATE OCT 2023
     Route: 058
     Dates: start: 20231003
  6. HUMIRA [Suspect]
     Active Substance: ADALIMUMAB
     Dosage: FORM STRENGTH 40 MILLIGRAM
     Route: 058
     Dates: start: 20231205, end: 20231205
  7. HUMIRA [Suspect]
     Active Substance: ADALIMUMAB
     Dosage: FORM STRENGTH 40 MILLIGRAM?LAST ADMIN DATE 2023
     Route: 058
     Dates: start: 20231122
  8. SULFAMETHOXAZOLE\TRIMETHOPRIM [Concomitant]
     Active Substance: SULFAMETHOXAZOLE\TRIMETHOPRIM
     Indication: Product used for unknown indication
     Route: 048
     Dates: start: 20221206
  9. SULFAMETHOXAZOLE AND TRIMETHOPRIM [Concomitant]
     Active Substance: SULFAMETHOXAZOLE\TRIMETHOPRIM
     Indication: Prophylaxis
     Route: 048
     Dates: start: 20221206
  10. FAMOTIDINE [Concomitant]
     Active Substance: FAMOTIDINE
     Indication: Prophylaxis
     Dosage: 40 MILLIGRAM
     Route: 048
     Dates: start: 20221206
  11. BETAMETHASONE SODIUM PHOSPHATE [Concomitant]
     Active Substance: BETAMETHASONE SODIUM PHOSPHATE
     Indication: Uveitis
     Dosage: STRENGTH: 0.1 PERCENT
     Route: 047
     Dates: start: 20221206
  12. ALFACALCIDOL [Concomitant]
     Active Substance: ALFACALCIDOL
     Indication: Prophylaxis
     Dosage: 1 MICROGRAM
     Route: 048
     Dates: start: 20221206
  13. CYCLOSPORINE [Concomitant]
     Active Substance: CYCLOSPORINE
     Indication: Uveitis
     Dosage: TIME INTERVAL: 0.16666667 DAYS: 300 MILLIGRAM
     Route: 048
     Dates: start: 20230530
  14. PREDNISOLONE [Concomitant]
     Active Substance: PREDNISOLONE
     Indication: Uveitis
     Dosage: 10 MILLIGRAM
     Route: 048
     Dates: start: 20221206

REACTIONS (11)
  - Eye infection syphilitic [Recovered/Resolved with Sequelae]
  - Neurosyphilis [Not Recovered/Not Resolved]
  - Syphilis [Recovered/Resolved]
  - Gait disturbance [Unknown]
  - Blindness [Recovered/Resolved]
  - Decreased appetite [Unknown]
  - Malaise [Unknown]
  - Muscular weakness [Not Recovered/Not Resolved]
  - Hepatic function abnormal [Unknown]
  - Hepatitis [Unknown]
  - Liver disorder [Recovering/Resolving]

NARRATIVE: CASE EVENT DATE: 20231201
